FAERS Safety Report 13542859 (Version 6)
Quarter: 2017Q3

REPORT INFORMATION
  Report Type: Report from Study
  Country: None (occurrence: UY)
  Receive Date: 20170512
  Receipt Date: 20170930
  Transmission Date: 20171127
  Serious: Yes (Hospitalization)
  Sender: FDA-Public Use
  Company Number: UY-ABBVIE-17K-168-1971940-00

PATIENT
  Age: 67 Year
  Sex: Female

DRUGS (5)
  1. HUMIRA [Suspect]
     Active Substance: ADALIMUMAB
     Indication: RHEUMATOID ARTHRITIS
     Route: 058
     Dates: start: 20150101
  2. TRAPAX [Concomitant]
     Active Substance: LORAZEPAM
     Indication: PSYCHOTHERAPY
  3. MELOXICAM. [Concomitant]
     Active Substance: MELOXICAM
     Indication: PRODUCT USED FOR UNKNOWN INDICATION
  4. SOMIT [Concomitant]
     Indication: PSYCHOTHERAPY
  5. IPRAN [Concomitant]
     Active Substance: ESCITALOPRAM OXALATE
     Indication: MENTAL DISORDER

REACTIONS (4)
  - Rectal neoplasm [Unknown]
  - Treatment failure [Recovered/Resolved]
  - Blister [Unknown]
  - Hypersensitivity [Unknown]

NARRATIVE: CASE EVENT DATE: 20170723
